FAERS Safety Report 14137584 (Version 2)
Quarter: 2017Q4

REPORT INFORMATION
  Report Type: Spontaneous
  Country: GB (occurrence: GB)
  Receive Date: 20171027
  Receipt Date: 20171215
  Transmission Date: 20180321
  Serious: Yes (Hospitalization)
  Sender: FDA-Public Use
  Company Number: GB-NOVOPROD-569191

PATIENT
  Age: 10 Year
  Sex: Female
  Weight: 55 kg

DRUGS (3)
  1. NOVORAPID [Suspect]
     Active Substance: INSULIN ASPART
     Dosage: 60-70 IU QD
     Route: 058
     Dates: start: 20171017, end: 20171017
  2. NOVORAPID [Suspect]
     Active Substance: INSULIN ASPART
     Indication: TYPE 1 DIABETES MELLITUS
     Dosage: 60-70 IU QD
     Route: 058
  3. NOVORAPID [Suspect]
     Active Substance: INSULIN ASPART
     Dosage: 60-70 IU QD
     Route: 058
     Dates: start: 20171015

REACTIONS (3)
  - Blood glucose abnormal [Recovered/Resolved]
  - Diabetic ketoacidosis [Recovering/Resolving]
  - Product leakage [Unknown]

NARRATIVE: CASE EVENT DATE: 20171016
